FAERS Safety Report 7327428-4 (Version None)
Quarter: 2011Q1

REPORT INFORMATION
  Report Type: 
  Country: None (occurrence: None)
  Receive Date: 20110303
  Receipt Date: 20110223
  Transmission Date: 20110831
  Serious: Yes (Hospitalization, Other)
  Sender: FDA-Public Use
  Company Number: US-ASTRAZENECA-2007UW02182

PATIENT
  Age: 11391 Day
  Sex: Female

DRUGS (26)
  1. SEROQUEL [Suspect]
     Dosage: 25 MG TO 75 MG
     Route: 048
     Dates: start: 19990706, end: 20000726
  2. SEROQUEL [Suspect]
     Dosage: 25 MG, 50 MG, 75 MG, 200 MG
     Route: 048
     Dates: start: 20000706
  3. PERCOCET [Concomitant]
     Dosage: 1-2 Q4H, 1-2 Q6H
     Route: 048
     Dates: start: 20040617
  4. DURAGESIC-50 [Concomitant]
     Dates: start: 20040617
  5. GLIPIZIDE [Concomitant]
     Dosage: 5 B.I.D.
     Route: 048
     Dates: start: 20051230
  6. DEMEROL [Concomitant]
     Route: 048
     Dates: start: 20001114
  7. PREVACID [Concomitant]
     Dates: start: 20060109
  8. MORPHINE SULFATE [Concomitant]
     Dosage: 30 MG 1-2Q4-6 HOURS
     Dates: start: 20060109
  9. SEROQUEL [Suspect]
     Route: 048
     Dates: start: 20060109
  10. ATIVAN [Concomitant]
     Dosage: 1 MG TID, 1 MG BID, 1 MG 1/2 TID
     Route: 048
     Dates: start: 19970801
  11. PREVACID [Concomitant]
     Route: 048
     Dates: start: 20001114
  12. CELEBREX [Concomitant]
     Dates: start: 19990225, end: 19990423
  13. LORAZEPAM [Concomitant]
     Dates: start: 19991228
  14. RISPERDAL [Concomitant]
  15. NEURONTIN [Concomitant]
     Dates: start: 20050808
  16. PAMELOR [Concomitant]
     Dosage: INCREASED BY 25 MG PER DAY, 100 MG
     Dates: start: 19990222
  17. PERCOCET [Concomitant]
     Indication: PAIN
     Dosage: 5-20 MG
     Dates: start: 19990222
  18. GLUCOSAMINE CHONDROITIN COMPLEX [Concomitant]
     Dosage: 2 TAB AT QHS
  19. PAXIL [Concomitant]
     Dates: start: 19990607
  20. ALBUTEROL [Concomitant]
     Dosage: 90 MCG 2 PUFFS
     Dates: start: 20050808
  21. SEROQUEL [Suspect]
     Route: 048
     Dates: start: 20000701, end: 20051201
  22. NAVANE [Concomitant]
     Dates: start: 19931101
  23. PAMELOR [Concomitant]
     Dosage: 75 MG QHS, 100 MG QHS, 25 MG TO 100 MG
     Route: 048
     Dates: start: 19980710
  24. ADVAIR DISKUS 100/50 [Concomitant]
     Dosage: 100/50 BID
     Dates: start: 20050808
  25. NEXIUM [Concomitant]
     Dates: start: 20050808
  26. LORAZEPAM [Concomitant]
     Dates: start: 19990607

REACTIONS (18)
  - LACERATION [None]
  - JOINT EFFUSION [None]
  - TONSILLAR DISORDER [None]
  - GASTRITIS [None]
  - OROPHARYNGEAL PAIN [None]
  - ARTHRALGIA [None]
  - PROCEDURAL PAIN [None]
  - SUBCUTANEOUS ABSCESS [None]
  - TYPE 2 DIABETES MELLITUS [None]
  - BACK PAIN [None]
  - ABDOMINAL PAIN [None]
  - UTERINE DISORDER [None]
  - MUSCLE STRAIN [None]
  - SOFT TISSUE INFECTION [None]
  - UTERINE HAEMORRHAGE [None]
  - VOMITING [None]
  - NAUSEA [None]
  - DIZZINESS [None]
